FAERS Safety Report 5536180-4 (Version None)
Quarter: 2007Q4

REPORT INFORMATION
  Report Type: 
  Country: None (occurrence: None)
  Receive Date: 20071206
  Receipt Date: 20071127
  Transmission Date: 20080405
  Serious: Yes (Other)
  Sender: FDA-Public Use
  Company Number: BR-PFIZER INC-2007100928

PATIENT
  Sex: Female
  Weight: 54 kg

DRUGS (2)
  1. DEPO-PROVERA SUSPENSION/INJ [Suspect]
     Indication: CONTRACEPTION
     Route: 030
     Dates: start: 20060801, end: 20060801
  2. DEPO-PROVERA SUSPENSION/INJ [Suspect]
     Dates: start: 20070824, end: 20070824

REACTIONS (2)
  - ARTHRITIS [None]
  - UPPER LIMB FRACTURE [None]
